FAERS Safety Report 7740565-5 (Version None)
Quarter: 2011Q3

REPORT INFORMATION
  Report Type: 
  Country: None (occurrence: None)
  Receive Date: 20110909
  Receipt Date: 20110830
  Transmission Date: 20111222
  Serious: Yes (Life-Threatening)
  Sender: FDA-Public Use
  Company Number: US-CELGENEUS-163-21880-11050050

PATIENT
  Sex: Male
  Weight: 90.8 kg

DRUGS (18)
  1. DIOVAN [Concomitant]
     Route: 065
  2. REVLIMID [Suspect]
     Indication: MYELODYSPLASTIC SYNDROME
     Dosage: 10 MILLIGRAM
     Route: 048
     Dates: start: 20110203, end: 20110406
  3. GLUCOSAMINE CHONDROITIN [Concomitant]
     Dosage: 500
     Route: 048
  4. RED BLOOD CELLS [Concomitant]
     Dosage: 3 UNITS
     Route: 041
     Dates: start: 20110301, end: 20110301
  5. SAW PALMETTO [Concomitant]
     Dosage: 400 MILLIGRAM
     Route: 048
  6. FISH OIL [Concomitant]
     Route: 065
  7. CALCIUM CARBONATE [Concomitant]
     Dosage: 600
     Route: 048
  8. CENTRUM SILVER [Concomitant]
     Route: 048
  9. TYLENOL PM [Concomitant]
     Route: 048
  10. OMEPRAZOLE [Concomitant]
     Route: 065
  11. VYTORIN [Concomitant]
     Route: 065
  12. CIALIS [Concomitant]
     Route: 065
  13. NIACIN [Concomitant]
     Dosage: 500 MILLIGRAM
     Route: 048
  14. BENADRYL [Concomitant]
     Dosage: 25 MILLIGRAM
     Route: 048
  15. SIMVASTATIN [Concomitant]
     Dosage: 40 MILLIGRAM
     Route: 048
  16. TRICOR [Concomitant]
     Dosage: 48 MILLIGRAM
     Route: 048
  17. ASPIRIN [Concomitant]
     Dosage: 81 MILLIGRAM
     Route: 065
  18. MTV [Concomitant]
     Route: 065

REACTIONS (3)
  - ACUTE LEUKAEMIA [None]
  - PETECHIAE [None]
  - SKIN LESION [None]
